FAERS Safety Report 20076226 (Version 1)
Quarter: 2021Q4

REPORT INFORMATION
  Report Type: Spontaneous
  Country: DE (occurrence: DE)
  Receive Date: 20211116
  Receipt Date: 20211116
  Transmission Date: 20220303
  Serious: Yes (Other)
  Sender: FDA-Public Use
  Company Number: DE-002147023-NVSC2021DE187482

PATIENT
  Age: 3 Month
  Sex: Male

DRUGS (1)
  1. EVEROLIMUS [Suspect]
     Active Substance: EVEROLIMUS
     Indication: Cardiac hypertrophy
     Dosage: 0.11 MG/KG, QD
     Route: 065

REACTIONS (5)
  - Pulmonary lymphangiectasia [Unknown]
  - Ventricular septal defect [Unknown]
  - Cardiac hypertrophy [Unknown]
  - Lymphopenia [Unknown]
  - Off label use [Unknown]
